APPROVED DRUG PRODUCT: MOMETASONE FUROATE
Active Ingredient: MOMETASONE FUROATE
Strength: 0.1%
Dosage Form/Route: LOTION;TOPICAL
Application: A077180 | Product #001 | TE Code: AB
Applicant: PADAGIS ISRAEL PHARMACEUTICALS LTD
Approved: Apr 6, 2005 | RLD: No | RS: Yes | Type: RX